FAERS Safety Report 17926248 (Version 2)
Quarter: 2020Q3

REPORT INFORMATION
  Report Type: Spontaneous
  Country: IN (occurrence: IN)
  Receive Date: 20200622
  Receipt Date: 20200819
  Transmission Date: 20201103
  Serious: Yes (Other)
  Sender: FDA-Public Use
  Company Number: IN-JNJFOC-20200616623

PATIENT

DRUGS (1)
  1. HUMAN CLOTTABLE PROTEIN/HUMAN THROMBIN [Suspect]
     Active Substance: FIBRINOGEN HUMAN\THROMBIN HUMAN
     Indication: TISSUE SEALING
     Route: 061

REACTIONS (10)
  - Macular oedema [Unknown]
  - Inflammation [Unknown]
  - Off label use [Unknown]
  - Macular fibrosis [Unknown]
  - Product use in unapproved indication [Unknown]
  - Glaucoma [Unknown]
  - Pigment dispersion syndrome [Unknown]
  - Intraocular pressure increased [Unknown]
  - Pseudophakic bullous keratopathy [Unknown]
  - Rhegmatogenous retinal detachment [Unknown]
